FAERS Safety Report 6438973-8 (Version None)
Quarter: 2009Q4

REPORT INFORMATION
  Report Type: 
  Country: None (occurrence: None)
  Receive Date: 20091112
  Receipt Date: 20080825
  Transmission Date: 20100525
  Serious: Yes (Hospitalization)
  Sender: FDA-Public Use
  Company Number: 200813828

PATIENT
  Age: 89 Year
  Sex: Male
  Weight: 86.1834 kg

DRUGS (6)
  1. PRIVIGEN [Suspect]
     Indication: CONDITION AGGRAVATED
     Dosage: 35 G QD IV
     Route: 042
     Dates: start: 20080617, end: 20080622
  2. PRIVIGEN [Suspect]
     Indication: MYASTHENIA GRAVIS
     Dosage: 35 G QD IV
     Route: 042
     Dates: start: 20080617, end: 20080622
  3. MESTINON [Concomitant]
  4. NORVASC [Concomitant]
  5. ASPIRIN [Concomitant]
  6. CELEXA [Concomitant]

REACTIONS (1)
  - HAEMOLYTIC ANAEMIA [None]
